FAERS Safety Report 4769133-4 (Version None)
Quarter: 2005Q3

REPORT INFORMATION
  Report Type: 
  Country: None (occurrence: None)
  Receive Date: 20050912
  Receipt Date: 20050708
  Transmission Date: 20060218
  Serious: Yes (Hospitalization)
  Sender: FDA-Public Use
  Company Number: 2005-01472

PATIENT
  Age: 73 Year
  Sex: Female
  Weight: 69.1 kg

DRUGS (7)
  1. VELCADE [Suspect]
     Indication: MULTIPLE MYELOMA
     Dosage: 6.60 MG, 2/WEEK, INTRAVENOUS
     Route: 042
     Dates: start: 20050426, end: 20050617
  2. DOXIL [Suspect]
     Indication: MULTIPLE MYELOMA
     Dosage: 51.00 MG, Q3WEEKS, INTRAVENOUS
     Route: 042
     Dates: start: 20050426, end: 20050614
  3. OXYCODONE HCL [Concomitant]
  4. HYDROCODONE COMPOUND [Concomitant]
  5. LORTAB [Concomitant]
  6. ZOMETA [Concomitant]
  7. PROCRIT [Concomitant]

REACTIONS (3)
  - BACK PAIN [None]
  - CONSTIPATION [None]
  - FATIGUE [None]
